FAERS Safety Report 17574255 (Version 1)
Quarter: 2020Q1

REPORT INFORMATION
  Report Type: Spontaneous
  Country: US (occurrence: US)
  Receive Date: 20200324
  Receipt Date: 20200324
  Transmission Date: 20200409
  Serious: No
  Sender: FDA-Public Use
  Company Number: US-CIPLA LTD.-2020US00665

PATIENT

DRUGS (1)
  1. SERTRALINE [Suspect]
     Active Substance: SERTRALINE HYDROCHLORIDE
     Indication: DEPRESSION
     Dosage: ON THE SMALLEST DOSAGE, QD (ONCE A DAY IN THE  MORNING)
     Route: 048
     Dates: start: 201912, end: 202001

REACTIONS (6)
  - Pruritus [Recovering/Resolving]
  - Nonspecific reaction [Recovering/Resolving]
  - Urticaria [Recovering/Resolving]
  - Drug hypersensitivity [Recovering/Resolving]
  - Burning sensation [Recovering/Resolving]
  - Rash [Recovering/Resolving]

NARRATIVE: CASE EVENT DATE: 202001
